FAERS Safety Report 7671052-0 (Version None)
Quarter: 2011Q3

REPORT INFORMATION
  Report Type: 
  Country: None (occurrence: None)
  Receive Date: 20110809
  Receipt Date: 20110801
  Transmission Date: 20111222
  Serious: Yes (Other)
  Sender: FDA-Public Use
  Company Number: IT-JNJFOC-20110801377

PATIENT
  Sex: Female

DRUGS (2)
  1. ZOLEDRONIC ACID [Concomitant]
  2. DOXORUBICIN HYDROCHLORIDE [Suspect]
     Indication: BREAST CANCER
     Route: 042
     Dates: start: 20110725, end: 20110725

REACTIONS (4)
  - RASH MORBILLIFORM [None]
  - FEELING HOT [None]
  - COUGH [None]
  - ERYTHEMA [None]
